FAERS Safety Report 16167068 (Version 1)
Quarter: 2019Q2

REPORT INFORMATION
  Report Type: Spontaneous
  Country: US (occurrence: US)
  Receive Date: 20190408
  Receipt Date: 20190408
  Transmission Date: 20190711
  Serious: No
  Sender: FDA-Public Use
  Company Number: US-009507513-1904USA001262

PATIENT
  Age: 23 Year
  Sex: Female
  Weight: 48.07 kg

DRUGS (1)
  1. NUVARING [Suspect]
     Active Substance: ETHINYL ESTRADIOL\ETONOGESTREL
     Indication: CONTRACEPTION
     Dosage: 1 RING (0.015/0.12 MG), QM (3 WEEKS IN, 1 WEEK OUT)
     Route: 067
     Dates: start: 20190314

REACTIONS (2)
  - Pain [Recovered/Resolved]
  - Device breakage [Recovered/Resolved]

NARRATIVE: CASE EVENT DATE: 20190401
